FAERS Safety Report 7661113-4 (Version None)
Quarter: 2011Q3

REPORT INFORMATION
  Report Type: 
  Country: None (occurrence: None)
  Receive Date: 20110805
  Receipt Date: 20100920
  Transmission Date: 20111222
  Serious: No
  Sender: FDA-Public Use
  Company Number: US-ABBOTT-10P-163-0672793-00

PATIENT
  Sex: Female
  Weight: 83.536 kg

DRUGS (7)
  1. CLARITIN [Concomitant]
     Indication: SEASONAL ALLERGY
  2. NIASPAN [Suspect]
     Indication: BLOOD CHOLESTEROL INCREASED
     Dates: start: 20100913
  3. PRISTIQ [Concomitant]
  4. PROZAC [Concomitant]
     Indication: PRODUCT USED FOR UNKNOWN INDICATION
     Dates: start: 20100914
  5. NADOLOL [Concomitant]
     Indication: VENTRICULAR EXTRASYSTOLES
     Dates: start: 20010101
  6. PRISTIQ [Concomitant]
     Indication: PRODUCT USED FOR UNKNOWN INDICATION
  7. LEVOTHYROXINE SODIUM [Concomitant]
     Indication: HYPOTHYROIDISM

REACTIONS (2)
  - FLATULENCE [None]
  - ABDOMINAL DISTENSION [None]
